FAERS Safety Report 6029688-9 (Version None)
Quarter: 2009Q1

REPORT INFORMATION
  Report Type: 
  Country: None (occurrence: None)
  Receive Date: 20090107
  Receipt Date: 20081231
  Transmission Date: 20090719
  Serious: No
  Sender: FDA-Public Use
  Company Number: PHHY2008FR30805

PATIENT
  Sex: Female
  Weight: 54 kg

DRUGS (2)
  1. ACLASTA [Suspect]
     Indication: OSTEOPOROSIS POSTMENOPAUSAL
     Dosage: UNK
     Route: 042
     Dates: start: 20081122
  2. PARACETAMOL [Concomitant]

REACTIONS (9)
  - BONE PAIN [None]
  - C-REACTIVE PROTEIN INCREASED [None]
  - CHILLS [None]
  - CONFUSIONAL STATE [None]
  - FIBRIN D DIMER INCREASED [None]
  - INFLAMMATION [None]
  - INFLUENZA LIKE ILLNESS [None]
  - MYALGIA [None]
  - RED BLOOD CELL SEDIMENTATION RATE INCREASED [None]
